FAERS Safety Report 10330384 (Version 3)
Quarter: 2014Q3

REPORT INFORMATION
  Report Type: Spontaneous
  Country: IT (occurrence: IT)
  Receive Date: 20140722
  Receipt Date: 20140822
  Transmission Date: 20150326
  Serious: Yes (Hospitalization)
  Sender: FDA-Public Use
  Company Number: IT-ROCHE-1437043

PATIENT
  Age: 84 Year
  Sex: Female

DRUGS (13)
  1. LUCENTIS [Suspect]
     Active Substance: RANIBIZUMAB
     Dosage: AS NEEDED
     Route: 050
     Dates: start: 20131213, end: 20131213
  2. LUCENTIS [Suspect]
     Active Substance: RANIBIZUMAB
     Dosage: RIGHT EYE FOURTH DOSE
     Route: 050
     Dates: start: 20130927
  3. LUCENTIS [Suspect]
     Active Substance: RANIBIZUMAB
     Dosage: RIGHT EYE FIFTH DOSE
     Route: 050
     Dates: start: 20140312
  4. AVASTIN [Suspect]
     Active Substance: BEVACIZUMAB
     Dosage: LEFT EYE
     Route: 065
     Dates: start: 20131018
  5. LUCENTIS [Suspect]
     Active Substance: RANIBIZUMAB
     Dosage: RIGHT EYE SIXTH DOSE
     Route: 050
     Dates: start: 20140703
  6. AVASTIN [Suspect]
     Active Substance: BEVACIZUMAB
     Indication: MACULAR DEGENERATION
     Dosage: AS NEEDED
     Route: 031
     Dates: start: 20100506
  7. EYLEA [Concomitant]
     Active Substance: AFLIBERCEPT
     Route: 065
     Dates: start: 20140630
  8. LUCENTIS [Suspect]
     Active Substance: RANIBIZUMAB
     Indication: MACULAR DEGENERATION
     Route: 050
     Dates: start: 20130221
  9. AVASTIN [Suspect]
     Active Substance: BEVACIZUMAB
     Dosage: LEFT EYE
     Route: 065
     Dates: start: 20130621
  10. EYLEA [Concomitant]
     Active Substance: AFLIBERCEPT
     Route: 065
     Dates: start: 20140526
  11. LUCENTIS [Suspect]
     Active Substance: RANIBIZUMAB
     Route: 050
     Dates: start: 20130307
  12. LUCENTIS [Suspect]
     Active Substance: RANIBIZUMAB
     Dosage: RIGHT EYE THIRD DOSE
     Route: 050
     Dates: start: 20130517
  13. LUCENTIS [Suspect]
     Active Substance: RANIBIZUMAB
     Dosage: RIGHT EYE SECOND DOSE
     Route: 050
     Dates: start: 20130412

REACTIONS (1)
  - Ischaemic stroke [Recovered/Resolved]

NARRATIVE: CASE EVENT DATE: 20131227
